FAERS Safety Report 12266524 (Version 1)
Quarter: 2016Q2

REPORT INFORMATION
  Report Type: Spontaneous
  Country: US (occurrence: US)
  Receive Date: 20160414
  Receipt Date: 20160414
  Transmission Date: 20160815
  Serious: No
  Sender: FDA-Public Use
  Company Number: US-BIOGEN-2016BI00214933

PATIENT
  Sex: Female

DRUGS (1)
  1. PLEGRIDY [Suspect]
     Active Substance: PEGINTERFERON BETA-1A
     Indication: MULTIPLE SCLEROSIS
     Route: 065
     Dates: start: 20150520

REACTIONS (5)
  - Pyrexia [Unknown]
  - Loss of control of legs [Unknown]
  - Malaise [Not Recovered/Not Resolved]
  - Pain [Unknown]
  - Injection site inflammation [Unknown]
